FAERS Safety Report 17165966 (Version 2)
Quarter: 2020Q1

REPORT INFORMATION
  Report Type: Spontaneous
  Country: AU (occurrence: AU)
  Receive Date: 20191217
  Receipt Date: 20200213
  Transmission Date: 20200409
  Serious: Yes (Hospitalization)
  Sender: FDA-Public Use
  Company Number: AU-PFIZER INC-2019483433

PATIENT
  Age: 45 Year
  Sex: Female
  Weight: 76 kg

DRUGS (2)
  1. PREMARIN [Suspect]
     Active Substance: ESTROGENS, CONJUGATED
     Indication: GONADOTROPHIN DEFICIENCY
     Dosage: 0.625 MG, UNK
     Dates: start: 2003
  2. PREMARIN [Suspect]
     Active Substance: ESTROGENS, CONJUGATED
     Indication: HORMONE THERAPY
     Dosage: UNK
     Dates: start: 2003

REACTIONS (7)
  - Wound [Unknown]
  - Urine odour abnormal [Unknown]
  - Vaginal disorder [Not Recovered/Not Resolved]
  - Product physical issue [Unknown]
  - Blood testosterone abnormal [Unknown]
  - Suspected counterfeit product [Not Recovered/Not Resolved]
  - Drug ineffective [Not Recovered/Not Resolved]
